FAERS Safety Report 5135432-X (Version None)
Quarter: 2006Q4

REPORT INFORMATION
  Report Type: 
  Country: None (occurrence: None)
  Receive Date: 20061026
  Receipt Date: 20061017
  Transmission Date: 20070319
  Serious: Yes (Other)
  Sender: FDA-Public Use
  Company Number: JP-JPN-A200604237

PATIENT
  Sex: Female

DRUGS (5)
  1. PAXIL [Suspect]
     Dosage: 20MG PER DAY
     Route: 048
  2. SEROQUEL [Concomitant]
     Route: 048
  3. LEXOTAN [Concomitant]
     Route: 048
  4. DEPAS [Concomitant]
     Route: 048
  5. LENDORMIN [Concomitant]
     Route: 048

REACTIONS (3)
  - HYPERHIDROSIS [None]
  - HYPOTHERMIA [None]
  - LOSS OF CONSCIOUSNESS [None]
